FAERS Safety Report 11076068 (Version 1)
Quarter: 2015Q2

REPORT INFORMATION
  Report Type: Spontaneous
  Country: US (occurrence: US)
  Receive Date: 20150429
  Receipt Date: 20150429
  Transmission Date: 20150821
  Serious: Yes (Death, Other)
  Sender: FDA-Public Use
  Company Number: US-UNITED THERAPEUTICS-UNT-2015-004809

PATIENT
  Sex: Female

DRUGS (1)
  1. REMODULIN [Suspect]
     Active Substance: TREPROSTINIL
     Indication: PRODUCT USED FOR UNKNOWN INDICATION
     Dosage: 0.12 ?G/KG, CONTINUING
     Route: 058
     Dates: start: 20140815, end: 20150416

REACTIONS (4)
  - Cardiac failure [Unknown]
  - Pancreatitis [Unknown]
  - Pulmonary hypertension [Unknown]
  - Death [Fatal]

NARRATIVE: CASE EVENT DATE: 20150416
